FAERS Safety Report 8353217-8 (Version None)
Quarter: 2012Q2

REPORT INFORMATION
  Report Type: 
  Country: None (occurrence: None)
  Receive Date: 20120511
  Receipt Date: 20120501
  Transmission Date: 20120825
  Serious: Yes (Other)
  Sender: FDA-Public Use
  Company Number: CA-JNJFOC-20120301393

PATIENT
  Sex: Male
  Weight: 81.5 kg

DRUGS (6)
  1. REMICADE [Suspect]
     Dosage: 38TH INFUSION
     Route: 042
     Dates: start: 20100501
  2. MESALAMINE [Concomitant]
     Route: 048
  3. REMICADE [Suspect]
     Indication: CROHN'S DISEASE
     Dosage: START DATE= ^BEFORE 22-SEP-2005^
     Route: 042
  4. IMURAN [Concomitant]
     Indication: IMMUNOSUPPRESSANT DRUG THERAPY
     Route: 048
  5. INSULIN [Concomitant]
     Indication: DIABETES MELLITUS
     Dosage: BETWEEN 24-30 UNITS/DAY, PER SLIDING SCALE
     Route: 065
  6. CRESTOR [Concomitant]
     Indication: BLOOD CHOLESTEROL
     Route: 048

REACTIONS (2)
  - LIPOMA [None]
  - DERMAL CYST [None]
